FAERS Safety Report 5605594-6 (Version None)
Quarter: 2008Q1

REPORT INFORMATION
  Report Type: 
  Country: None (occurrence: None)
  Receive Date: 20080125
  Receipt Date: 20080125
  Transmission Date: 20080703
  Serious: No
  Sender: FDA-Public Use
  Company Number: None

PATIENT
  Sex: Female
  Weight: 58.514 kg

DRUGS (1)
  1. BONIVA [Suspect]
     Indication: OSTEOPOROSIS
     Dosage: ONE 150 MG TABLET ONCE MONTHLY PO
     Route: 048
     Dates: start: 20060210, end: 20080110

REACTIONS (8)
  - ARTHRALGIA [None]
  - BACK PAIN [None]
  - BLOOD CHOLESTEROL INCREASED [None]
  - EXTRASYSTOLES [None]
  - HEADACHE [None]
  - HEART RATE IRREGULAR [None]
  - NAUSEA [None]
  - PALPITATIONS [None]
